FAERS Safety Report 5696141-1 (Version None)
Quarter: 2008Q2

REPORT INFORMATION
  Report Type: 
  Country: None (occurrence: None)
  Receive Date: 20080407
  Receipt Date: 20080401
  Transmission Date: 20081010
  Serious: Yes (Hospitalization, Other)
  Sender: FDA-Public Use
  Company Number: US-ASTRAZENECA-2008UW06039

PATIENT
  Age: 55 Year
  Sex: Male

DRUGS (11)
  1. ZD1839 [Suspect]
     Indication: OESOPHAGEAL ADENOCARCINOMA
     Route: 048
     Dates: end: 20080320
  2. NEXIUM [Concomitant]
     Route: 048
  3. LISINOPRIL [Concomitant]
     Route: 048
  4. TRAMADOL HCL [Concomitant]
     Dosage: 2 TO 3 TABLETS PER DAY
     Route: 048
  5. OXYCODONE HCL [Concomitant]
     Indication: PAIN
     Dosage: 1 TO 2 TABS EVERY 4 TO 6 HOURS
  6. AMBIEN [Concomitant]
  7. ZOFRAN [Concomitant]
     Indication: NAUSEA
     Dosage: EVERY 8 HOURS
  8. COMPAZINE [Concomitant]
  9. DECADRON [Concomitant]
     Dosage: PER PROTOCOL
  10. K-DUR [Concomitant]
  11. MAGNESIUM OXIDE [Concomitant]

REACTIONS (5)
  - FEBRILE NEUTROPENIA [None]
  - NAUSEA [None]
  - PNEUMATOSIS [None]
  - PNEUMOPERITONEUM [None]
  - VOMITING [None]
